FAERS Safety Report 9859075 (Version 2)
Quarter: 2014Q2

REPORT INFORMATION
  Report Type: Spontaneous
  Country: US (occurrence: None)
  Receive Date: 20140129
  Receipt Date: 20140409
  Transmission Date: 20141212
  Serious: Yes (Other)
  Sender: FDA-Public Use
  Company Number: 2014-US-000461

PATIENT
  Age: 54 Year
  Sex: Female
  Weight: 65.8 kg

DRUGS (1)
  1. XYREM (SODIUM OXYBATE) ORAL SOLUTION, 500MG/ML [Suspect]
     Indication: SLEEP DISORDER
     Route: 048
     Dates: start: 200711

REACTIONS (11)
  - Drug dose omission [None]
  - Malaise [None]
  - Delirium [None]
  - Fall [None]
  - Insomnia [None]
  - Ligament sprain [None]
  - Joint swelling [None]
  - Peripheral swelling [None]
  - Tibia fracture [None]
  - Malaise [None]
  - Impaired driving ability [None]
